FAERS Safety Report 9605674 (Version 2)
Quarter: 2013Q4

REPORT INFORMATION
  Report Type: Spontaneous
  Country: FR (occurrence: FR)
  Receive Date: 20131008
  Receipt Date: 20131024
  Transmission Date: 20140711
  Serious: Yes (Hospitalization)
  Sender: FDA-Public Use
  Company Number: FR-B.I. PHARMACEUTICALS,INC./RIDGEFIELD-2013-FF-02425FF

PATIENT
  Age: 83 Year
  Sex: Female
  Weight: 52 kg

DRUGS (4)
  1. PRADAXA [Suspect]
     Indication: ATRIAL FIBRILLATION
     Dosage: 220 MG
     Dates: start: 20130910
  2. ANTIARRHYTHMIC AGENTS UNSPECIFIED [Concomitant]
  3. AVLOCARDYL [Concomitant]
     Dosage: 120 MG
  4. LEVOTHYROX [Concomitant]
     Dosage: 50 MCG

REACTIONS (2)
  - Ischaemic stroke [Not Recovered/Not Resolved]
  - Atrial fibrillation [Unknown]
